FAERS Safety Report 19145681 (Version 1)
Quarter: 2021Q2

REPORT INFORMATION
  Report Type: Spontaneous
  Country: US (occurrence: US)
  Receive Date: 20210416
  Receipt Date: 20210416
  Transmission Date: 20210717
  Serious: Yes (Other)
  Sender: FDA-Public Use
  Company Number: None

PATIENT
  Age: 35 Year
  Sex: Female

DRUGS (1)
  1. METHYLPHENIDATE ER 54 MG [Suspect]
     Active Substance: METHYLPHENIDATE
     Indication: ATTENTION DEFICIT HYPERACTIVITY DISORDER
     Dosage: ?          QUANTITY:30 TABLET(S);?
     Route: 048

REACTIONS (11)
  - Suicidal ideation [None]
  - Drug delivery system malfunction [None]
  - Mood swings [None]
  - Anxiety [None]
  - Drug ineffective [None]
  - Disturbance in attention [None]
  - Product substitution issue [None]
  - Social problem [None]
  - Depression [None]
  - Panic attack [None]
  - Impaired work ability [None]

NARRATIVE: CASE EVENT DATE: 20210328
